FAERS Safety Report 14730673 (Version 1)
Quarter: 2018Q2

REPORT INFORMATION
  Report Type: Report from Study
  Country: JP (occurrence: JP)
  Receive Date: 20180406
  Receipt Date: 20180406
  Transmission Date: 20180711
  Serious: Yes (Hospitalization)
  Sender: FDA-Public Use
  Company Number: PHJP2017JP007419

PATIENT
  Age: 47 Year
  Sex: Female
  Weight: 62 kg

DRUGS (15)
  1. LEE011 [Suspect]
     Active Substance: RIBOCICLIB
     Dosage: 200 MG, QD
     Route: 048
     Dates: start: 20170413, end: 20170503
  2. DENOTAS [Concomitant]
     Active Substance: CALCIUM CARBONATE\CHOLECALCIFEROL\MAGNESIUM CARBONATE
     Indication: PROPHYLAXIS
     Dosage: 2 DF, QD
     Route: 048
     Dates: start: 20170215
  3. FENELMIN [Concomitant]
     Indication: ANAEMIA
     Dosage: 100 MG, QD
     Route: 048
     Dates: start: 20170214
  4. PROPETO [Concomitant]
     Indication: BREAST CANCER
     Dosage: PRN
     Route: 062
     Dates: start: 20170113
  5. FEXOFENADINE HYDROCHLORIDE. [Concomitant]
     Active Substance: FEXOFENADINE HYDROCHLORIDE
     Indication: SEASONAL ALLERGY
     Dosage: 120 MG, QD
     Route: 048
     Dates: start: 20170214
  6. LEE011 [Suspect]
     Active Substance: RIBOCICLIB
     Dosage: 200 MG, QD
     Route: 048
     Dates: start: 20170901, end: 20170920
  7. TAMOXIFEN [Suspect]
     Active Substance: TAMOXIFEN
     Indication: BREAST CANCER
     Dosage: 20 MG, QD
     Route: 048
     Dates: start: 20170216
  8. LEE011 [Suspect]
     Active Substance: RIBOCICLIB
     Indication: BREAST CANCER
     Dosage: 300 MG, QD
     Route: 048
     Dates: start: 20170216, end: 20170301
  9. LEE011 [Suspect]
     Active Substance: RIBOCICLIB
     Dosage: 200 MG, QD
     Route: 048
     Dates: start: 20170328, end: 20170405
  10. MECOBALAMIN [Concomitant]
     Active Substance: METHYLCOBALAMIN
     Indication: ANAEMIA
     Dosage: 500 UG, TID
     Route: 048
     Dates: start: 20170214
  11. GOSERELIN ACETATE [Suspect]
     Active Substance: GOSERELIN ACETATE
     Indication: BREAST CANCER
     Dosage: 3.6 MG, 4W
     Route: 058
     Dates: start: 20170216
  12. ROZEX (METRONIDAZOLE) [Concomitant]
     Active Substance: METRONIDAZOLE
     Indication: BREAST CANCER
     Dosage: PRN
     Route: 062
     Dates: start: 20170113
  13. AMLODIPINE [Concomitant]
     Active Substance: AMLODIPINE BESYLATE
     Indication: HYPERTENSION
     Dosage: 5 MG, QD
     Route: 048
     Dates: start: 20170209
  14. RANMARK [Concomitant]
     Active Substance: DENOSUMAB
     Indication: BREAST CANCER
     Dosage: 120 MG, UNK
     Route: 058
     Dates: start: 20170214
  15. LEE011 [Suspect]
     Active Substance: RIBOCICLIB
     Dosage: 200 MG, QD
     Route: 048
     Dates: start: 20170928, end: 20171018

REACTIONS (1)
  - Diarrhoea [Recovered/Resolved]

NARRATIVE: CASE EVENT DATE: 20170228
